FAERS Safety Report 14649971 (Version 4)
Quarter: 2018Q2

REPORT INFORMATION
  Report Type: Report from Study
  Country: CA (occurrence: CA)
  Receive Date: 20180316
  Receipt Date: 20180502
  Transmission Date: 20180711
  Serious: Yes (Hospitalization, Other)
  Sender: FDA-Public Use
  Company Number: CA-BIOGEN-2018BI00539297

PATIENT
  Sex: Female

DRUGS (2)
  1. TYSABRI [Suspect]
     Active Substance: NATALIZUMAB
     Indication: MULTIPLE SCLEROSIS
     Dosage: INFUSED OVER 1 HOUR
     Route: 042
     Dates: start: 20070517, end: 20180215
  2. TYSABRI [Suspect]
     Active Substance: NATALIZUMAB
     Route: 065
     Dates: end: 20180307

REACTIONS (16)
  - Diarrhoea [Unknown]
  - Micturition frequency decreased [Unknown]
  - Muscular weakness [Not Recovered/Not Resolved]
  - Asthenia [Unknown]
  - Confusional state [Not Recovered/Not Resolved]
  - Sinusitis [Unknown]
  - Pneumonia [Unknown]
  - Skin exfoliation [Not Recovered/Not Resolved]
  - Infarction [Unknown]
  - Anaemia of chronic disease [Not Recovered/Not Resolved]
  - Cough [Recovered/Resolved]
  - Respiratory arrest [Recovered/Resolved]
  - Sepsis [Unknown]
  - Influenza [Unknown]
  - Post procedural complication [Not Recovered/Not Resolved]
  - Blood pressure abnormal [Unknown]

NARRATIVE: CASE EVENT DATE: 2018
